FAERS Safety Report 5105095-8 (Version None)
Quarter: 2006Q3

REPORT INFORMATION
  Report Type: 
  Country: None (occurrence: None)
  Receive Date: 20060914
  Receipt Date: 20060906
  Transmission Date: 20061208
  Serious: Yes (Hospitalization, Other)
  Sender: FDA-Public Use
  Company Number: US-ABBOTT-06P-163-0343300-00

PATIENT
  Sex: Female

DRUGS (3)
  1. DEPAKOTE ER [Suspect]
     Indication: EPILEPSY
     Route: 048
  2. DEPAKOTE [Suspect]
     Indication: EPILEPSY
     Route: 048
  3. DEPAKOTE [Suspect]
     Route: 048

REACTIONS (4)
  - COUGH [None]
  - GRAND MAL CONVULSION [None]
  - MEDICATION ERROR [None]
  - PYREXIA [None]
